FAERS Safety Report 5417067-4 (Version None)
Quarter: 2007Q3

REPORT INFORMATION
  Report Type: 
  Country: None (occurrence: None)
  Receive Date: 20070718
  Receipt Date: 20060630
  Transmission Date: 20080115
  Serious: Yes (Hospitalization, Other)
  Sender: FDA-Public Use
  Company Number: 2005125989

PATIENT
  Age: 41 Year
  Sex: Female
  Weight: 84.8226 kg

DRUGS (4)
  1. CELEBREX [Suspect]
     Indication: PAIN IN EXTREMITY
     Dosage: 400 MG (200 MG, 2 IN 1 D), ORAL
     Route: 048
     Dates: start: 20030407
  2. VIOXX [Concomitant]
  3. ADVIL [Concomitant]
  4. ACETYLSALICYLIC ACID SRT [Concomitant]

REACTIONS (1)
  - MYOCARDIAL INFARCTION [None]
